FAERS Safety Report 15752086 (Version 2)
Quarter: 2019Q1

REPORT INFORMATION
  Report Type: Report from Study
  Country: JP (occurrence: JP)
  Receive Date: 20181221
  Receipt Date: 20190128
  Transmission Date: 20190417
  Serious: Yes (Hospitalization, Disabling)
  Sender: FDA-Public Use
  Company Number: JP-ACTELION-A-CH2018-183702

PATIENT
  Age: 76 Year
  Sex: Female
  Weight: 28.5 kg

DRUGS (15)
  1. TAKECAB [Concomitant]
     Active Substance: VONOPRAZAN FUMURATE
     Indication: GASTROOESOPHAGEAL REFLUX DISEASE
     Dosage: 20 MG, QD
     Dates: start: 20180614
  2. ALFACALCIDOL [Concomitant]
     Active Substance: ALFACALCIDOL
     Indication: OSTEOPOROSIS
     Dosage: 0.5 ?G, QD
     Dates: start: 20171027
  3. WARFARIN POTASSIUM [Concomitant]
     Active Substance: WARFARIN POTASSIUM
     Indication: PULMONARY HYPERTENSION
     Dosage: 1.75 MG, QD
     Dates: start: 20181005
  4. DICLOFENAC [Concomitant]
     Active Substance: DICLOFENAC
     Indication: BACK PAIN
     Dosage: 100 MG, QD
     Dates: start: 20180126
  5. CLARITHROMYCIN. [Concomitant]
     Active Substance: CLARITHROMYCIN
     Indication: SINUSITIS
     Dosage: 45 MG, QD
     Dates: start: 20181030
  6. TERNELIN [Concomitant]
     Active Substance: TIZANIDINE
     Indication: BACK PAIN
     Dosage: 3 MG, QD
     Dates: start: 20131226
  7. AMBROXOL HYDROCHLORIDE [Concomitant]
     Active Substance: AMBROXOL HYDROCHLORIDE
     Indication: SINUSITIS
     Dosage: 45 MG, QD
     Dates: start: 20181030
  8. SELEXIPAG [Suspect]
     Active Substance: SELEXIPAG
     Indication: PULMONARY HYPERTENSION
     Dosage: 200 ?G, BID
     Route: 048
     Dates: start: 20180416, end: 20181214
  9. ADEMPAS [Concomitant]
     Active Substance: RIOCIGUAT
     Indication: PULMONARY HYPERTENSION
     Dosage: 6 MG, QD
     Dates: start: 20140704
  10. MS ONSHIPPU [Concomitant]
     Active Substance: CAMPHOR\CAPSICUM\METHYL SALICYLATE
     Indication: BACK PAIN
     Dosage: UNK
     Dates: start: 20181122
  11. NEUROTROPIN [Concomitant]
     Active Substance: NEUROTROPIN
     Indication: BACK PAIN
     Dosage: 16 IU, QD
     Dates: start: 20141201
  12. SELEXIPAG [Suspect]
     Active Substance: SELEXIPAG
     Indication: PULMONARY HYPERTENSION
     Dosage: 200 ?G, BID
     Route: 048
     Dates: start: 20180416, end: 20181214
  13. MAGNESIUM OXIDE. [Concomitant]
     Active Substance: MAGNESIUM OXIDE
     Indication: CONSTIPATION
     Dosage: 990 MG, QD
     Dates: start: 20181208
  14. CYMBALTA [Concomitant]
     Active Substance: DULOXETINE HYDROCHLORIDE
     Indication: BACK PAIN
     Dosage: 20 MG, QD
     Dates: start: 20170911
  15. TRAMCET [Concomitant]
     Active Substance: ACETAMINOPHEN\TRAMADOL
     Indication: BACK PAIN
     Dosage: UNK
     Dates: start: 20180723

REACTIONS (15)
  - Pain in extremity [Not Recovered/Not Resolved]
  - Balance disorder [Unknown]
  - Facial bones fracture [Not Recovered/Not Resolved]
  - Haemorrhage subcutaneous [Not Recovered/Not Resolved]
  - Gastrointestinal disorder [Unknown]
  - Bedridden [Not Recovered/Not Resolved]
  - Tenderness [Not Recovered/Not Resolved]
  - Femur fracture [Not Recovered/Not Resolved]
  - Internal fixation of fracture [Not Recovered/Not Resolved]
  - Spinal compression fracture [Not Recovered/Not Resolved]
  - Defaecation urgency [Unknown]
  - Fall [Unknown]
  - Wheelchair user [Unknown]
  - Deep vein thrombosis [Unknown]
  - Pulmonary embolism [Unknown]

NARRATIVE: CASE EVENT DATE: 20181205
